FAERS Safety Report 4579212-2 (Version None)
Quarter: 2005Q1

REPORT INFORMATION
  Report Type: 
  Country: None (occurrence: None)
  Receive Date: 20050208
  Receipt Date: 20050208
  Transmission Date: 20050727
  Serious: Yes (Hospitalization)
  Sender: FDA-Public Use
  Company Number: None

PATIENT
  Age: 49 Year
  Sex: Male

DRUGS (1)
  1. QUETIAPINE [Suspect]
     Dosage: 200 MG PO 9 AM
     Route: 048
     Dates: start: 20030601, end: 20041101

REACTIONS (1)
  - BLOOD GLUCOSE INCREASED [None]
